FAERS Safety Report 8842966 (Version 1)
Quarter: 2012Q4

REPORT INFORMATION
  Report Type: 
  Country: US (occurrence: US)
  Receive Date: 20121016
  Receipt Date: 20121016
  Transmission Date: 20130627
  Serious: Yes (Life-Threatening, Other)
  Sender: FDA-Public Use
  Company Number: US-ROCHE-1129130

PATIENT
  Age: 36 Year
  Sex: Male
  Weight: 114.8 kg

DRUGS (1)
  1. NUTROPIN [Suspect]
     Indication: GROWTH HORMONE DEFICIENCY
     Route: 058

REACTIONS (11)
  - Insulin-like growth factor decreased [Unknown]
  - Impaired healing [Unknown]
  - Oedema peripheral [Unknown]
  - Insulin resistance [Unknown]
  - Pain in extremity [Unknown]
  - Muscular weakness [Unknown]
  - Visual acuity reduced [Unknown]
  - Dyspnoea [Unknown]
  - Alopecia [Unknown]
  - Mood swings [Unknown]
  - Fungal skin infection [Unknown]
